FAERS Safety Report 23798870 (Version 1)
Quarter: 2024Q2

REPORT INFORMATION
  Report Type: Spontaneous
  Country: US (occurrence: None)
  Receive Date: 20240427
  Receipt Date: 20240427
  Transmission Date: 20240716
  Serious: Yes (Other)
  Sender: FDA-Public Use
  Company Number: None

PATIENT
  Age: 37 Year
  Sex: Female
  Weight: 72 kg

DRUGS (2)
  1. HERBALS\TETRAHYDROCANNABIPHORAL [Suspect]
     Active Substance: HERBALS\TETRAHYDROCANNABIPHORAL
     Dates: start: 20240421, end: 20240421
  2. SERTRALINE [Concomitant]
     Active Substance: SERTRALINE HYDROCHLORIDE

REACTIONS (4)
  - Dizziness [None]
  - Nausea [None]
  - Confusional state [None]
  - Disorientation [None]

NARRATIVE: CASE EVENT DATE: 20240421
